FAERS Safety Report 12915913 (Version 2)
Quarter: 2016Q4

REPORT INFORMATION
  Report Type: Report from Study
  Country: AT (occurrence: AT)
  Receive Date: 20161104
  Receipt Date: 20161207
  Transmission Date: 20170207
  Serious: Yes (Other)
  Sender: FDA-Public Use
  Company Number: AT-PFIZER INC-2016513434

PATIENT
  Age: 53 Year
  Sex: Female
  Weight: 73 kg

DRUGS (2)
  1. PALBOCICLIB [Suspect]
     Active Substance: PALBOCICLIB
     Indication: BREAST CANCER
     Dosage: 125 MG, DAILY, CYCLIC, (3/1)
     Route: 048
     Dates: start: 20161019, end: 20161102
  2. FASLODEX [Concomitant]
     Active Substance: FULVESTRANT
     Indication: BREAST CANCER
     Dosage: 500 MG, UNK
     Route: 030
     Dates: start: 20161010

REACTIONS (3)
  - Dyspnoea [Unknown]
  - General physical health deterioration [Unknown]
  - Cytopenia [Recovered/Resolved]

NARRATIVE: CASE EVENT DATE: 20161102
